FAERS Safety Report 6542121-3 (Version None)
Quarter: 2010Q1

REPORT INFORMATION
  Report Type: 
  Country: None (occurrence: None)
  Receive Date: 20100114
  Receipt Date: 20100114
  Transmission Date: 20100710
  Serious: Yes (Hospitalization)
  Sender: FDA-Public Use
  Company Number: None

PATIENT
  Sex: Male
  Weight: 20.6 kg

DRUGS (6)
  1. PEG-L-ASPARAGINASE (K-H) [Suspect]
     Dosage: 4250 IU
     Dates: end: 20100111
  2. VINCRISTINE SULFATE [Suspect]
     Dosage: 2.6 MG
     Dates: end: 20091214
  3. CYCLOPHOSPHAMIDE [Suspect]
     Dosage: 1710 MG
     Dates: end: 20091228
  4. CYTARABINE [Suspect]
     Dosage: 496 MG
     Dates: end: 20100107
  5. MERCAPTOPURINE [Suspect]
     Dosage: 1400 MG
     Dates: end: 20100110
  6. METHOTREXATE [Suspect]
     Dosage: 48 MG
     Dates: end: 20091214

REACTIONS (6)
  - DYSPNOEA [None]
  - HYPOTENSION [None]
  - LIP SWELLING [None]
  - SWELLING FACE [None]
  - TACHYCARDIA [None]
  - URTICARIA [None]
